FAERS Safety Report 24203121 (Version 1)
Quarter: 2024Q3

REPORT INFORMATION
  Report Type: Spontaneous
  Country: IR (occurrence: IR)
  Receive Date: 20240813
  Receipt Date: 20240813
  Transmission Date: 20241017
  Serious: Yes (Other)
  Sender: STRIDES
  Company Number: IR-STRIDES ARCOLAB LIMITED-2024SP009984

PATIENT
  Age: 51 Year
  Sex: Female

DRUGS (3)
  1. METHOTREXATE [Suspect]
     Active Substance: METHOTREXATE
     Indication: Urticarial vasculitis
     Dosage: UNK
     Route: 065
  2. PREDNISOLONE [Suspect]
     Active Substance: PREDNISOLONE
     Indication: Urticarial vasculitis
     Dosage: UNK
     Route: 065
  3. COVID-19 VACCINE NOS [Concomitant]
     Active Substance: COVID-19 VACCINE
     Indication: COVID-19 immunisation
     Dosage: UNK (RECEIVED SECOND DOSE)
     Route: 065

REACTIONS (2)
  - Duodenal ulcer [Unknown]
  - Off label use [Unknown]
